FAERS Safety Report 18397064 (Version 29)
Quarter: 2025Q2

REPORT INFORMATION
  Report Type: Report from Study
  Country: US (occurrence: US)
  Receive Date: 20201019
  Receipt Date: 20250410
  Transmission Date: 20250716
  Serious: Yes (Other)
  Sender: TAKEDA
  Company Number: US-SHIRE-US202034307

PATIENT
  Age: 78 Year
  Sex: Female
  Weight: 60 kg

DRUGS (31)
  1. HUMAN IMMUNOGLOBULIN G\HYALURONIDASE RECOMBINANT HUMAN [Suspect]
     Active Substance: HUMAN IMMUNOGLOBULIN G\HYALURONIDASE (HUMAN RECOMBINANT)
     Indication: Immunodeficiency common variable
     Dosage: 30 MILLIGRAM, Q4WEEKS
     Dates: start: 20191017
  2. HUMAN IMMUNOGLOBULIN G\HYALURONIDASE RECOMBINANT HUMAN [Suspect]
     Active Substance: HUMAN IMMUNOGLOBULIN G\HYALURONIDASE (HUMAN RECOMBINANT)
     Dosage: 22.5 GRAM, Q4WEEKS
  3. AMBIEN [Suspect]
     Active Substance: ZOLPIDEM TARTRATE
     Indication: Product used for unknown indication
  4. PROLIA [Suspect]
     Active Substance: DENOSUMAB
     Indication: Product used for unknown indication
  5. SINGULAIR [Concomitant]
     Active Substance: MONTELUKAST SODIUM
  6. SYNTHROID [Concomitant]
     Active Substance: LEVOTHYROXINE SODIUM
  7. PEPCID [Concomitant]
     Active Substance: FAMOTIDINE
  8. ZYRTEC [Concomitant]
     Active Substance: CETIRIZINE HYDROCHLORIDE
  9. PROLIA [Concomitant]
     Active Substance: DENOSUMAB
  10. PLAVIX [Concomitant]
     Active Substance: CLOPIDOGREL BISULFATE
  11. PERCOCET [Concomitant]
     Active Substance: ACETAMINOPHEN\OXYCODONE HYDROCHLORIDE
  12. ACETAMINOPHEN [Concomitant]
     Active Substance: ACETAMINOPHEN
  13. LIDOCAINE [Concomitant]
     Active Substance: LIDOCAINE
  14. DIPHENHYDRAMINE [Concomitant]
     Active Substance: DIPHENHYDRAMINE
  15. SODIUM CHLORIDE [Concomitant]
     Active Substance: SODIUM CHLORIDE
  16. EPINEPHRINE [Concomitant]
     Active Substance: EPINEPHRINE
  17. FOSAMAX [Concomitant]
     Active Substance: ALENDRONATE SODIUM
  18. MESALAMINE [Concomitant]
     Active Substance: MESALAMINE
  19. VANCOMYCIN HYDROCHLORIDE [Concomitant]
     Active Substance: VANCOMYCIN HYDROCHLORIDE
  20. DIPHENHYDRAMINE HYDROCHLORIDE [Concomitant]
     Active Substance: DIPHENHYDRAMINE HYDROCHLORIDE
  21. MIDODRINE HYDROCHLORIDE [Concomitant]
     Active Substance: MIDODRINE HYDROCHLORIDE
  22. SUMATRIPTAN SUCCINATE [Concomitant]
     Active Substance: SUMATRIPTAN SUCCINATE
  23. ESTRADIOL [Concomitant]
     Active Substance: ESTRADIOL
  24. ADVAIR HFA [Concomitant]
     Active Substance: FLUTICASONE PROPIONATE\SALMETEROL XINAFOATE
  25. CLOBETASOL PROPIONATE [Concomitant]
     Active Substance: CLOBETASOL PROPIONATE
  26. PROAIR RESPICLICK [Concomitant]
     Active Substance: ALBUTEROL SULFATE
  27. HERBALS\TURMERIC [Concomitant]
     Active Substance: HERBALS\TURMERIC
  28. CALCIUM [Concomitant]
     Active Substance: CALCIUM
  29. LOMOTIL [Concomitant]
     Active Substance: ATROPINE SULFATE\DIPHENOXYLATE HYDROCHLORIDE
  30. REPATHA [Concomitant]
     Active Substance: EVOLOCUMAB
  31. CYCLOBENZAPRINE HYDROCHLORIDE [Concomitant]
     Active Substance: CYCLOBENZAPRINE HYDROCHLORIDE

REACTIONS (36)
  - Diverticulitis [Unknown]
  - Colitis microscopic [Recovering/Resolving]
  - Clostridium difficile infection [Unknown]
  - Colitis [Unknown]
  - Osteomyelitis [Unknown]
  - Lower respiratory tract infection [Unknown]
  - Spinal fracture [Unknown]
  - COVID-19 [Unknown]
  - Urinary tract infection [Unknown]
  - Infusion site rash [Unknown]
  - Smoke sensitivity [Unknown]
  - Gastrointestinal infection [Unknown]
  - Drug hypersensitivity [Unknown]
  - Shoulder fracture [Unknown]
  - Urine output decreased [Unknown]
  - Nasopharyngitis [Recovered/Resolved]
  - Infusion related reaction [Recovered/Resolved]
  - Sinusitis [Unknown]
  - Abdominal discomfort [Unknown]
  - Osteoarthritis [Unknown]
  - Seasonal allergy [Unknown]
  - Gastrointestinal disorder [Unknown]
  - Osteoporosis [Unknown]
  - Infusion site discharge [Unknown]
  - Ear infection [Unknown]
  - Cystitis [Unknown]
  - Incorrect dose administered [Unknown]
  - Multiple allergies [Unknown]
  - Eczema [Not Recovered/Not Resolved]
  - Mobility decreased [Unknown]
  - Dyspepsia [Unknown]
  - Arthralgia [Unknown]
  - Local reaction [Unknown]
  - Infusion site mass [Unknown]
  - Infusion site pain [Unknown]
  - Fatigue [Recovered/Resolved]

NARRATIVE: CASE EVENT DATE: 20201001
